FAERS Safety Report 10186544 (Version 2)
Quarter: 2014Q2

REPORT INFORMATION
  Report Type: Report from Study
  Country: US (occurrence: US)
  Receive Date: 20140521
  Receipt Date: 20140521
  Transmission Date: 20141212
  Serious: Yes (Other)
  Sender: FDA-Public Use
  Company Number: PHEH2014US007894

PATIENT
  Age: 44 Year
  Sex: Female
  Weight: 108.84 kg

DRUGS (1)
  1. GILENYA [Suspect]
     Indication: MULTIPLE SCLEROSIS
     Dosage: 0.5 MG, QD
     Route: 048
     Dates: start: 20140418

REACTIONS (4)
  - Ventricular extrasystoles [Not Recovered/Not Resolved]
  - Fatigue [Unknown]
  - Bradycardia [Not Recovered/Not Resolved]
  - Headache [Unknown]
